FAERS Safety Report 5378277-8 (Version None)
Quarter: 2007Q3

REPORT INFORMATION
  Report Type: 
  Country: None (occurrence: None)
  Receive Date: 20070705
  Receipt Date: 20070627
  Transmission Date: 20080115
  Serious: Yes (Life-Threatening, Hospitalization)
  Sender: FDA-Public Use
  Company Number: ES-BAYER-200713562GDS

PATIENT
  Age: 82 Year
  Sex: Male

DRUGS (1)
  1. ADIRO 100 [Suspect]
     Indication: DRUG USE FOR UNKNOWN INDICATION
     Dosage: UNIT DOSE: 100 MG
     Route: 048
     Dates: end: 20060613

REACTIONS (1)
  - ANAEMIA [None]
